FAERS Safety Report 25128401 (Version 1)
Quarter: 2025Q1

REPORT INFORMATION
  Report Type: Spontaneous
  Country: IT (occurrence: IT)
  Receive Date: 20250327
  Receipt Date: 20250327
  Transmission Date: 20250408
  Serious: Yes (Other)
  Sender: NOVARTIS
  Company Number: IT-002147023-NVSC2025IT048859

PATIENT
  Age: 24 Year
  Sex: Male

DRUGS (5)
  1. CANAKINUMAB [Suspect]
     Active Substance: CANAKINUMAB
     Indication: PSTPIP1-associated myeloid-related proteinaemia inflammatory syndrome
     Route: 065
  2. CANAKINUMAB [Suspect]
     Active Substance: CANAKINUMAB
     Dosage: 300 MG, Q4W
     Route: 065
  3. CANAKINUMAB [Suspect]
     Active Substance: CANAKINUMAB
     Dosage: 150 MG, QMO
     Route: 065
  4. PREDNISONE [Suspect]
     Active Substance: PREDNISONE
     Indication: PSTPIP1-associated myeloid-related proteinaemia inflammatory syndrome
     Route: 065
  5. TACROLIMUS [Suspect]
     Active Substance: TACROLIMUS
     Indication: PSTPIP1-associated myeloid-related proteinaemia inflammatory syndrome
     Route: 065

REACTIONS (7)
  - Kidney fibrosis [Recovering/Resolving]
  - Focal segmental glomerulosclerosis [Recovering/Resolving]
  - Proteinuria [Recovering/Resolving]
  - Haematuria [Recovering/Resolving]
  - Hyperuricaemia [Recovering/Resolving]
  - Hypoalbuminaemia [Recovering/Resolving]
  - Off label use [Unknown]
